FAERS Safety Report 13260873 (Version 1)
Quarter: 2017Q1

REPORT INFORMATION
  Report Type: Spontaneous
  Country: US (occurrence: US)
  Receive Date: 20170222
  Receipt Date: 20170222
  Transmission Date: 20170428
  Serious: No
  Sender: FDA-Public Use
  Company Number: US-TEVA-731083ACC

PATIENT
  Age: 44 Year
  Sex: Male

DRUGS (11)
  1. MULTIVITAMIN TAB ADULTS [Concomitant]
  2. VITAMIN D3 CAP 5000UNIT [Concomitant]
     Dosage: FORM STRENGTH: 5000UNIT
  3. VITAMIN D CAP 5000UNIT [Concomitant]
     Dosage: FORM STRENGTH: 5000 UNIT
  4. COPAXONE [Suspect]
     Active Substance: GLATIRAMER ACETATE
     Indication: MULTIPLE SCLEROSIS
     Route: 058
     Dates: start: 20160107, end: 20161207
  5. IBUPROFEN TAB ADULTS [Concomitant]
  6. CALCIUM 600TAB [Concomitant]
     Dosage: FORM STRENGTH:600
  7. LOVASTATIN TAB 20MG [Concomitant]
  8. ESTRADIOL TAB 2MG [Concomitant]
  9. SPIRONOLACT TAB 50MG [Concomitant]
  10. LOVASTATIN TAB 20MG [Concomitant]
  11. FISH OIL CAP 1000MG [Concomitant]

REACTIONS (1)
  - Drug ineffective [Unknown]

NARRATIVE: CASE EVENT DATE: 20161207
